FAERS Safety Report 11222734 (Version 10)
Quarter: 2017Q2

REPORT INFORMATION
  Report Type: Spontaneous
  Country: US (occurrence: US)
  Receive Date: 20150626
  Receipt Date: 20170504
  Transmission Date: 20170829
  Serious: Yes (Hospitalization, Other)
  Sender: FDA-Public Use
  Company Number: US-BAYER-2015-189982

PATIENT
  Age: 64 Year
  Sex: Female
  Weight: 107 kg

DRUGS (5)
  1. ADEMPAS [Suspect]
     Active Substance: RIOCIGUAT
     Indication: COR PULMONALE
     Dosage: 2.5 MG, TID
     Route: 048
     Dates: start: 20150403
  2. VENTAVIS [Suspect]
     Active Substance: ILOPROST
     Indication: PULMONARY HYPERTENSION
     Dosage: 5 ?G, 6-9 TIMES DAILY
     Route: 055
     Dates: start: 20140527
  3. ADEMPAS [Suspect]
     Active Substance: RIOCIGUAT
     Indication: COR PULMONALE
     Dosage: UNK
     Route: 048
  4. XARELTO [Suspect]
     Active Substance: RIVAROXABAN
     Indication: PRODUCT USED FOR UNKNOWN INDICATION
     Dosage: UNK
  5. ADEMPAS [Suspect]
     Active Substance: RIOCIGUAT
     Indication: COR PULMONALE
     Dosage: 2.5 MG, TID
     Route: 048

REACTIONS (24)
  - Cholelithiasis [Unknown]
  - Cough [None]
  - Dyspepsia [Unknown]
  - Choking [Unknown]
  - Mouth haemorrhage [Unknown]
  - Gingival bleeding [Unknown]
  - Sinusitis [Unknown]
  - Abdominal distension [Unknown]
  - Flatulence [Unknown]
  - Pulmonary arterial pressure increased [None]
  - Gallbladder disorder [Unknown]
  - Gastrointestinal disorder [Unknown]
  - Productive cough [None]
  - Viral upper respiratory tract infection [Unknown]
  - Abdominal pain upper [Unknown]
  - Hypersensitivity [None]
  - Pneumonia [Unknown]
  - Dizziness [Unknown]
  - Gingival operation [Unknown]
  - Paraesthesia oral [Unknown]
  - Epistaxis [Unknown]
  - Oral fungal infection [Unknown]
  - Drug dose omission [None]
  - Sinus disorder [None]

NARRATIVE: CASE EVENT DATE: 20150725
